FAERS Safety Report 13352623 (Version 1)
Quarter: 2017Q1

REPORT INFORMATION
  Report Type: Report from Study
  Country: US (occurrence: US)
  Receive Date: 20170320
  Receipt Date: 20170320
  Transmission Date: 20170429
  Serious: Yes (Death, Hospitalization)
  Sender: FDA-Public Use
  Company Number: US-ACTELION-A-US2016-144659

PATIENT
  Age: 78 Year
  Sex: Female

DRUGS (12)
  1. TRACLEER [Suspect]
     Active Substance: BOSENTAN
     Dosage: 62.5 MG, UNK
     Route: 048
     Dates: start: 20160921, end: 20170306
  2. CALCITRIOL. [Concomitant]
     Active Substance: CALCITRIOL
  3. TRACLEER [Suspect]
     Active Substance: BOSENTAN
     Indication: PULMONARY HYPERTENSION
     Dosage: 125 MG, BID
     Route: 048
     Dates: start: 20131001
  4. FUROSEMIDE. [Concomitant]
     Active Substance: FUROSEMIDE
  5. ADEMPAS [Concomitant]
     Active Substance: RIOCIGUAT
  6. ATENOLOL. [Concomitant]
     Active Substance: ATENOLOL
  7. WARFARIN [Concomitant]
     Active Substance: WARFARIN
  8. DIGOXIN. [Concomitant]
     Active Substance: DIGOXIN
  9. TRIHEXYPHENIDYL [Concomitant]
     Active Substance: TRIHEXYPHENIDYL
  10. CLONIDINE. [Concomitant]
     Active Substance: CLONIDINE
  11. LANTUS [Concomitant]
     Active Substance: INSULIN GLARGINE
  12. FAMOTIDINE. [Concomitant]
     Active Substance: FAMOTIDINE

REACTIONS (3)
  - Dyspnoea [Unknown]
  - Death [Fatal]
  - Chest pain [Unknown]

NARRATIVE: CASE EVENT DATE: 20161020
